FAERS Safety Report 7114389-6 (Version None)
Quarter: 2010Q4

REPORT INFORMATION
  Report Type: 
  Country: None (occurrence: None)
  Receive Date: 20101119
  Receipt Date: 20101110
  Transmission Date: 20110411
  Serious: Yes (Other)
  Sender: FDA-Public Use
  Company Number: US-PFIZER INC-2010105634

PATIENT
  Sex: Male
  Weight: 129 kg

DRUGS (8)
  1. LYRICA [Suspect]
     Indication: NEUROPATHY PERIPHERAL
     Dosage: 50 MG, 1X/DAY
     Route: 048
     Dates: start: 20100801, end: 20100801
  2. LYRICA [Suspect]
     Dosage: 75 MG, 1X/DAY
     Route: 048
     Dates: start: 20100801
  3. SYMBICORT [Concomitant]
     Indication: DYSPNOEA
     Dosage: 80/4.5 MCG TWICE DAILY
  4. TERAZOSIN [Concomitant]
     Indication: BLADDER DISORDER
     Dosage: 1 DF, 2X/DAY
  5. METFORMIN [Concomitant]
     Indication: DIABETES MELLITUS
     Dosage: 500 MG, 1X/DAY
  6. SIMVASTATIN [Concomitant]
     Indication: BLOOD CHOLESTEROL ABNORMAL
     Dosage: 40 MG, 1X/DAY
  7. AVODART [Concomitant]
     Indication: PROSTATOMEGALY
     Dosage: UNK
     Route: 048
  8. PAROXETINE [Concomitant]
     Indication: NERVOUSNESS
     Dosage: 10 MG, 1X/DAY

REACTIONS (2)
  - PRURITUS [None]
  - SUNBURN [None]
